FAERS Safety Report 5116420-6 (Version None)
Quarter: 2006Q3

REPORT INFORMATION
  Report Type: 
  Country: None (occurrence: None)
  Receive Date: 20060928
  Receipt Date: 20060908
  Transmission Date: 20061208
  Serious: Yes (Other)
  Sender: FDA-Public Use
  Company Number: PHEH2006US11657

PATIENT
  Age: 53 Year
  Sex: Male
  Weight: 52.607 kg

DRUGS (2)
  1. AREDIA [Suspect]
     Indication: BONE LESION
     Dosage: 90 MG, QMO
     Dates: start: 20001201, end: 20000629
  2. AREDIA [Suspect]
     Dosage: INTERMITTENTLY
     Dates: end: 20060525

REACTIONS (12)
  - BONE GRAFT [None]
  - ERYTHEMA [None]
  - IMPAIRED HEALING [None]
  - JAW OPERATION [None]
  - LYMPHADENOPATHY [None]
  - ORAL PAIN [None]
  - ORAL SOFT TISSUE DISORDER [None]
  - OSTEOMYELITIS [None]
  - OSTEONECROSIS [None]
  - SOFT TISSUE INFECTION [None]
  - SWELLING [None]
  - TOOTH ABSCESS [None]
